FAERS Safety Report 8607540-X (Version None)
Quarter: 2012Q3

REPORT INFORMATION
  Report Type: 
  Country: None (occurrence: None)
  Receive Date: 20120821
  Receipt Date: 20120809
  Transmission Date: 20120928
  Serious: Yes (Other)
  Sender: FDA-Public Use
  Company Number: US-BAYER-2012-038689

PATIENT
  Age: 26 Year
  Sex: Female
  Weight: 40.816 kg

DRUGS (2)
  1. YAZ [Suspect]
     Dosage: UNK
     Route: 048
     Dates: start: 20020101, end: 20020101
  2. YASMIN [Suspect]
     Dosage: UNK
     Route: 048
     Dates: start: 20030101, end: 20030101

REACTIONS (4)
  - INJURY [None]
  - PAIN [None]
  - CHOLECYSTECTOMY [None]
  - MENSTRUAL DISORDER [None]
